FAERS Safety Report 6304994-9 (Version None)
Quarter: 2009Q3

REPORT INFORMATION
  Report Type: 
  Country: None (occurrence: None)
  Receive Date: 20090811
  Receipt Date: 20090729
  Transmission Date: 20100115
  Serious: Yes (Hospitalization)
  Sender: FDA-Public Use
  Company Number: GR-B.I. PHARMACEUTICALS,INC./RIDGEFIELD-2009-DE-05087GB

PATIENT
  Age: 72 Year
  Sex: Female

DRUGS (10)
  1. MIRAPEX [Suspect]
     Indication: PARKINSON'S DISEASE
     Dosage: 3.0
     Route: 048
     Dates: start: 20000220
  2. SINEMET [Concomitant]
     Indication: PARKINSON'S DISEASE
     Dosage: 250
     Route: 048
     Dates: start: 19980715
  3. COMTAN [Concomitant]
     Indication: PARKINSON'S DISEASE
     Dosage: 800
     Route: 048
     Dates: start: 20020617
  4. STALEVO 100 [Concomitant]
     Indication: PARKINSON'S DISEASE
     Dosage: 600
     Route: 048
     Dates: start: 20040311
  5. SYMMETREL [Concomitant]
     Indication: PARKINSON'S DISEASE
     Dosage: 200
     Route: 048
     Dates: start: 20050820
  6. LADOSE [Concomitant]
     Indication: DEPRESSION
     Dosage: 20
     Route: 048
  7. SEROQUEL [Concomitant]
     Indication: PARKINSON'S DISEASE
     Dosage: 50
     Route: 048
     Dates: start: 20050820
  8. MOVATEC [Concomitant]
     Indication: PAIN
  9. RIVOTRIL [Concomitant]
     Indication: PARKINSON'S DISEASE
     Dosage: 0.5
     Route: 048
  10. MADOPAR [Concomitant]
     Indication: PARKINSON'S DISEASE
     Dosage: 200
     Dates: start: 20040311

REACTIONS (4)
  - DYSTONIA [None]
  - HIP FRACTURE [None]
  - HYPERKINESIA [None]
  - ON AND OFF PHENOMENON [None]
